FAERS Safety Report 8176331-9 (Version None)
Quarter: 2012Q1

REPORT INFORMATION
  Report Type: 
  Country: None (occurrence: None)
  Receive Date: 20120301
  Receipt Date: 20120203
  Transmission Date: 20120608
  Serious: Yes (Other)
  Sender: FDA-Public Use
  Company Number: CA-JNJFOC-20120100877

PATIENT
  Sex: Female
  Weight: 55.4 kg

DRUGS (5)
  1. REMICADE [Suspect]
     Route: 042
     Dates: start: 20060801
  2. CELEXA [Concomitant]
     Route: 065
  3. REMICADE [Suspect]
     Indication: CROHN'S DISEASE
     Route: 042
     Dates: start: 20111202
  4. REMICADE [Suspect]
     Route: 042
     Dates: start: 20120103
  5. METHOTREXATE [Concomitant]
     Route: 048

REACTIONS (7)
  - ASTHENIA [None]
  - FAECAL INCONTINENCE [None]
  - DIARRHOEA [None]
  - WEIGHT DECREASED [None]
  - DECREASED APPETITE [None]
  - NAUSEA [None]
  - DIZZINESS [None]
